FAERS Safety Report 11145918 (Version 2)
Quarter: 2015Q3

REPORT INFORMATION
  Report Type: Spontaneous
  Country: US (occurrence: US)
  Receive Date: 20150528
  Receipt Date: 20150724
  Transmission Date: 20151125
  Serious: Yes (Death, Hospitalization)
  Sender: FDA-Public Use
  Company Number: US-ASTRAZENECA-2015SE46307

PATIENT
  Sex: Male

DRUGS (2)
  1. SEROQUEL [Suspect]
     Active Substance: QUETIAPINE FUMARATE
     Route: 048
     Dates: start: 20150513, end: 20150513
  2. NEURONTIN [Suspect]
     Active Substance: GABAPENTIN
     Dosage: A REGULAR DOSE, GIVEN ONCE
     Route: 048
     Dates: start: 20150513, end: 20150513

REACTIONS (5)
  - Cardiac arrest [Fatal]
  - Loss of consciousness [Not Recovered/Not Resolved]
  - Pneumothorax [Fatal]
  - Unresponsive to stimuli [Fatal]
  - Wrong drug administered [Fatal]

NARRATIVE: CASE EVENT DATE: 201505
